FAERS Safety Report 23435190 (Version 1)
Quarter: 2024Q1

REPORT INFORMATION
  Report Type: Spontaneous
  Country: US (occurrence: US)
  Receive Date: 20240123
  Receipt Date: 20240123
  Transmission Date: 20240409
  Serious: Yes (Other)
  Sender: FDA-Public Use
  Company Number: US-009507513-2401USA009669

PATIENT
  Sex: Male

DRUGS (10)
  1. KEYTRUDA [Suspect]
     Active Substance: PEMBROLIZUMAB
     Indication: Thyroid cancer
  2. LENVATINIB MESYLATE [Suspect]
     Active Substance: LENVATINIB MESYLATE
     Indication: Thyroid cancer
     Route: 048
  3. AMMONIUM LACTATE [Concomitant]
     Active Substance: AMMONIUM LACTATE
  4. CICLOPIROX [Concomitant]
     Active Substance: CICLOPIROX\TOCOPHEROL
  5. LATANOPROST [Concomitant]
     Active Substance: LATANOPROST
     Dosage: FORMULATION: SOLUTION
  6. LEVOTHYROXINE [Concomitant]
     Active Substance: LEVOTHYROXINE\LEVOTHYROXINE SODIUM
  7. LORAZEPAM [Concomitant]
     Active Substance: LORAZEPAM
  8. NIFEDIPINE [Concomitant]
     Active Substance: NIFEDIPINE
  9. PANTOPRAZOLE [Concomitant]
     Active Substance: PANTOPRAZOLE
  10. VOTRIENT [Concomitant]
     Active Substance: PAZOPANIB HYDROCHLORIDE

REACTIONS (1)
  - Acute kidney injury [Not Recovered/Not Resolved]
